FAERS Safety Report 6506496-3 (Version None)
Quarter: 2009Q4

REPORT INFORMATION
  Report Type: 
  Country: None (occurrence: None)
  Receive Date: 20091221
  Receipt Date: 20091216
  Transmission Date: 20100525
  Serious: Yes (Hospitalization)
  Sender: FDA-Public Use
  Company Number: FR-WYE-G05162409

PATIENT
  Sex: Male
  Weight: 13.2 kg

DRUGS (3)
  1. ADVIL LIQUI-GELS [Suspect]
     Indication: PYREXIA
     Route: 048
     Dates: start: 20090902, end: 20090904
  2. NUROFEN [Suspect]
     Indication: PYREXIA
     Dosage: ONE SINGLE DOSE OF 60 MG
     Route: 054
     Dates: start: 20090901, end: 20090901
  3. DOLIPRANE [Concomitant]
     Indication: PYREXIA
     Route: 048
     Dates: start: 20090902, end: 20090904

REACTIONS (3)
  - CONDITION AGGRAVATED [None]
  - INFECTION [None]
  - PERITONSILLAR ABSCESS [None]
